FAERS Safety Report 11689159 (Version 4)
Quarter: 2016Q1

REPORT INFORMATION
  Report Type: Spontaneous
  Country: US (occurrence: US)
  Receive Date: 20151102
  Receipt Date: 20160328
  Transmission Date: 20160525
  Serious: Yes (Life-Threatening, Hospitalization, Disabling)
  Sender: FDA-Public Use
  Company Number: US-ENDO PHARMACEUTICALS INC.-2015-003677

PATIENT
  Age: 61 Year
  Sex: Male
  Weight: 77.18 kg

DRUGS (2)
  1. TESTIM [Suspect]
     Active Substance: TESTOSTERONE
     Indication: ANDROGEN REPLACEMENT THERAPY
     Route: 062
     Dates: start: 201110, end: 201201
  2. ANDROGEL [Suspect]
     Active Substance: TESTOSTERONE
     Indication: ANDROGEN REPLACEMENT THERAPY
     Route: 065
     Dates: start: 201201, end: 201408

REACTIONS (2)
  - Myocardial infarction [Not Recovered/Not Resolved]
  - Sudden cardiac death [Recovered/Resolved]

NARRATIVE: CASE EVENT DATE: 20140820
